FAERS Safety Report 8266638-9 (Version None)
Quarter: 2012Q2

REPORT INFORMATION
  Report Type: 
  Country: None (occurrence: None)
  Receive Date: 20120406
  Receipt Date: 20120329
  Transmission Date: 20120825
  Serious: Yes (Hospitalization)
  Sender: FDA-Public Use
  Company Number: IL-TEVA-322608ISR

PATIENT
  Sex: Female
  Weight: 64.7 kg

DRUGS (4)
  1. PURINETHOL [Suspect]
     Indication: CROHN'S DISEASE
     Dosage: MERCAPTOPURINE 40MG OR 80MG OR PURINETHOL
     Route: 048
     Dates: start: 20111127, end: 20120212
  2. BUDESONIDE [Concomitant]
     Indication: CROHN'S DISEASE
     Dosage: 3 GRAM;
     Route: 048
  3. MERCAPTOPURINE [Suspect]
     Indication: CROHN'S DISEASE
     Dosage: MERCAPTOPURINE 40MG OR 80MG OR PURINETHOL
     Route: 048
     Dates: start: 20110609, end: 20120212
  4. PENTASA [Concomitant]
     Indication: CROHN'S DISEASE
     Dosage: 2 GRAM;
     Route: 048

REACTIONS (2)
  - ANAL ABSCESS [None]
  - FISTULA [None]
